FAERS Safety Report 9058558 (Version 2)
Quarter: 2013Q1

REPORT INFORMATION
  Report Type: Spontaneous
  Country: US (occurrence: US)
  Receive Date: 20130211
  Receipt Date: 20130227
  Transmission Date: 20140127
  Serious: Yes (Other)
  Sender: FDA-Public Use
  Company Number: PHEH2013US002975

PATIENT
  Sex: Female

DRUGS (15)
  1. DIOVAN HCT [Suspect]
  2. TOPROL XL [Concomitant]
     Dosage: 50 MG, UNK
  3. TOPROL XL [Concomitant]
     Dosage: 100 MG, UNK
  4. METFORMIN [Concomitant]
  5. AMARYL [Concomitant]
  6. NEURONTIN [Concomitant]
     Dosage: 300 MG, UNK
  7. PRADAXA [Concomitant]
  8. CYMBALTA [Concomitant]
     Dosage: 60 MG, UNK
  9. WELLBUTRIN [Concomitant]
     Dosage: 150 MG, UNK
  10. METOLAZONE [Concomitant]
  11. METOCLOPRAM [Concomitant]
  12. XANAX [Concomitant]
     Dosage: 1 MG, UNK
  13. SEROQUEL [Concomitant]
     Dosage: 200 MG, UNK
  14. TRAZODONE [Concomitant]
     Dosage: 50 MG, UNK
  15. DIOVAN HCT [Suspect]

REACTIONS (1)
  - Diabetes mellitus [Unknown]
